FAERS Safety Report 8765492 (Version 1)
Quarter: 2012Q4

REPORT INFORMATION
  Report Type: 
  Country: DE (occurrence: DE)
  Receive Date: 20120903
  Receipt Date: 20120903
  Transmission Date: 20130627
  Serious: Yes (Hospitalization)
  Sender: FDA-Public Use
  Company Number: DE-PFIZER INC-2012211383

PATIENT
  Age: 30 Year
  Sex: Female
  Weight: 150 kg

DRUGS (2)
  1. GENOTROPIN [Suspect]
     Dosage: 0.5 mg, 1x/day 7/wk
     Route: 058
     Dates: start: 20100118
  2. TRANSTEC [Concomitant]
     Indication: PAIN IN EXTREMITY
     Dosage: UNK
     Dates: start: 2002

REACTIONS (1)
  - Angiopathy [Unknown]
